FAERS Safety Report 22225203 (Version 2)
Quarter: 2023Q2

REPORT INFORMATION
  Report Type: Spontaneous
  Country: CA (occurrence: CA)
  Receive Date: 20230418
  Receipt Date: 20230501
  Transmission Date: 20230722
  Serious: Yes (Death, Other)
  Sender: FDA-Public Use
  Company Number: FR-BAYER-2023A038202

PATIENT
  Age: 32 Year
  Sex: Male

DRUGS (3)
  1. XOFIGO [Suspect]
     Active Substance: RADIUM RA-223 DICHLORIDE
     Indication: Medulloblastoma
     Dosage: UNK
     Dates: start: 20211208
  2. XOFIGO [Suspect]
     Active Substance: RADIUM RA-223 DICHLORIDE
     Indication: Medulloblastoma
     Dosage: UNK
  3. XOFIGO [Suspect]
     Active Substance: RADIUM RA-223 DICHLORIDE
     Indication: Medulloblastoma
     Dosage: UNK
     Dates: end: 20220202

REACTIONS (4)
  - Medulloblastoma [Fatal]
  - Metastatic neoplasm [Not Recovered/Not Resolved]
  - Anaemia [Recovered/Resolved]
  - Off label use [None]

NARRATIVE: CASE EVENT DATE: 20210923
